APPROVED DRUG PRODUCT: STERITALC
Active Ingredient: TALC
Strength: 3GM/VIAL
Dosage Form/Route: POWDER;INTRAPLEURAL
Application: N205555 | Product #002
Applicant: NOVATECH SA
Approved: May 1, 2017 | RLD: Yes | RS: No | Type: RX